FAERS Safety Report 9894466 (Version 2)
Quarter: 2014Q2

REPORT INFORMATION
  Report Type: Spontaneous
  Country: US (occurrence: US)
  Receive Date: 20140213
  Receipt Date: 20140410
  Transmission Date: 20141212
  Serious: Yes (Congenital Anomaly, Other)
  Sender: FDA-Public Use
  Company Number: US-PFIZER INC-2014039952

PATIENT
  Sex: Female

DRUGS (7)
  1. ZOLOFT [Suspect]
     Dosage: UNK
     Route: 064
     Dates: start: 2007, end: 2008
  2. SERTRALINE HCL [Suspect]
     Dosage: UNK
     Route: 064
     Dates: start: 2007, end: 2008
  3. AZITHROMYCIN [Concomitant]
     Dosage: UNK
     Route: 064
  4. ALBUTEROL [Concomitant]
     Dosage: UNK
     Route: 064
  5. CYPROHEPTADINE [Concomitant]
     Dosage: UNK
     Route: 064
  6. BUPROPION [Concomitant]
     Dosage: UNK
     Route: 064
  7. MICROGESTIN [Concomitant]
     Dosage: UNK
     Route: 064

REACTIONS (5)
  - Maternal exposure during pregnancy [Unknown]
  - Patent ductus arteriosus [Unknown]
  - Mitral valve incompetence [Unknown]
  - Dilatation ventricular [Unknown]
  - Ventricular dysfunction [Unknown]
